FAERS Safety Report 4383439-2 (Version None)
Quarter: 2004Q2

REPORT INFORMATION
  Report Type: 
  Country: None (occurrence: None)
  Receive Date: 20040618
  Receipt Date: 20040608
  Transmission Date: 20050107
  Serious: Yes (Death)
  Sender: FDA-Public Use
  Company Number: STA-AE-04-MTX-256

PATIENT
  Age: 49 Year
  Sex: Female

DRUGS (6)
  1. RHEUMATREX [Suspect]
     Indication: RHEUMATOID ARTHRITIS
     Dosage: 4 MG 1 X PER 1 WK, ORAL
     Route: 048
     Dates: start: 20040329, end: 20040329
  2. RHEUMATREX [Suspect]
     Indication: RHEUMATOID ARTHRITIS
     Dosage: 4 MG 1 X PER 1 WK, ORAL
     Route: 048
     Dates: start: 20040426, end: 20040507
  3. PRDONINE (PREDNISOLONE) [Concomitant]
  4. FOLIAMIN (FOLIC ACID) [Concomitant]
  5. DICLOFENAC (DICLOFENAC) [Concomitant]
  6. ALENDRONATE SODIUM [Concomitant]

REACTIONS (3)
  - ACUTE RESPIRATORY FAILURE [None]
  - CARDIO-RESPIRATORY ARREST [None]
  - DYSPNOEA [None]
